FAERS Safety Report 4905767-1 (Version None)
Quarter: 2006Q1

REPORT INFORMATION
  Report Type: 
  Country: None (occurrence: None)
  Receive Date: 20060206
  Receipt Date: 20060126
  Transmission Date: 20060701
  Serious: Yes (Other)
  Sender: FDA-Public Use
  Company Number: 2006013862

PATIENT
  Sex: Male

DRUGS (4)
  1. ZOLOFT [Suspect]
     Indication: ILL-DEFINED DISORDER
  2. ALL OTHER THERAPEUTIC PRODUCTS (ALL OTHER THERAPEUTIC PRODUCTS) [Concomitant]
  3. CHEMOTHERAPY NOS (CHEMOTHEAPY NOS) [Concomitant]
  4. FOSAMAX [Concomitant]

REACTIONS (2)
  - CROHN'S DISEASE [None]
  - VASECTOMY [None]
